FAERS Safety Report 9764224 (Version 1)
Quarter: 2013Q4

REPORT INFORMATION
  Report Type: Spontaneous
  Country: CA (occurrence: CA)
  Receive Date: 20131216
  Receipt Date: 20131216
  Transmission Date: 20140711
  Serious: Yes (Other)
  Sender: FDA-Public Use
  Company Number: CA-PFIZER INC-2013353904

PATIENT
  Age: 33 Year
  Sex: Female

DRUGS (8)
  1. CELEBREX [Suspect]
     Dosage: UNK
     Dates: end: 20131010
  2. RITUXAN [Suspect]
     Indication: RHEUMATOID ARTHRITIS
     Dosage: 1000 MG, DAY 1 AND DAY 15
     Dates: start: 20130405, end: 20131010
  3. TYLENOL NO. 3 [Concomitant]
     Dosage: UNK
  4. VITAMIN B12 [Concomitant]
     Dosage: UNK
  5. VITAMIN D [Concomitant]
     Dosage: UNK
  6. CALCIUM [Concomitant]
     Dosage: UNK
  7. IRON [Concomitant]
     Dosage: UNK
  8. ENSURE DRINKS [Concomitant]
     Dosage: UNK

REACTIONS (1)
  - Cardiac flutter [Unknown]
